FAERS Safety Report 4781235-5 (Version None)
Quarter: 2005Q3

REPORT INFORMATION
  Report Type: 
  Country: None (occurrence: None)
  Receive Date: 20050914
  Receipt Date: 20050117
  Transmission Date: 20060218
  Serious: Yes (Other)
  Sender: FDA-Public Use
  Company Number: 163-20785-05010293

PATIENT
  Age: 75 Year
  Sex: Male

DRUGS (6)
  1. THALOMID [Suspect]
     Indication: MULTIPLE MYELOMA
     Dosage: SEE IMAGE
     Route: 048
     Dates: start: 20040226, end: 20041101
  2. THALOMID [Suspect]
     Indication: MULTIPLE MYELOMA
     Dosage: SEE IMAGE
     Route: 048
     Dates: start: 20041101
  3. CELEBREX [Concomitant]
  4. PLAQUENIL [Concomitant]
  5. PACERONE [Concomitant]
  6. ACIPHEX [Concomitant]

REACTIONS (4)
  - FALL [None]
  - MUSCULAR WEAKNESS [None]
  - NEUROPATHY [None]
  - PELVIC FRACTURE [None]
